FAERS Safety Report 6164178-4 (Version None)
Quarter: 2009Q2

REPORT INFORMATION
  Report Type: 
  Country: None (occurrence: None)
  Receive Date: 20090422
  Receipt Date: 20090416
  Transmission Date: 20091009
  Serious: Yes (Other)
  Sender: FDA-Public Use
  Company Number: BR-PFIZER INC-2008058685

PATIENT

DRUGS (3)
  1. CHAMPIX [Suspect]
     Indication: SMOKING CESSATION THERAPY
     Route: 048
     Dates: start: 20080619, end: 20080629
  2. LIMBITROL [Concomitant]
     Dates: start: 20080201
  3. RIVOTRIL [Concomitant]

REACTIONS (1)
  - DEPRESSION [None]
